FAERS Safety Report 9004661 (Version 1)
Quarter: 2013Q1

REPORT INFORMATION
  Report Type: Spontaneous
  Country: US (occurrence: US)
  Receive Date: 20130109
  Receipt Date: 20130109
  Transmission Date: 20140127
  Serious: No
  Sender: FDA-Public Use
  Company Number: US-PFIZER INC-2013008995

PATIENT
  Age: 76 Year
  Sex: Male
  Weight: 86.17 kg

DRUGS (1)
  1. COLESTIPOL HCL [Suspect]
     Indication: BLOOD CHOLESTEROL ABNORMAL
     Dosage: 1 MG, UNK
     Route: 048
     Dates: start: 201212

REACTIONS (3)
  - Product size issue [Unknown]
  - Dysphagia [Unknown]
  - Foreign body [Unknown]
